FAERS Safety Report 9350567 (Version 2)
Quarter: 2013Q4

REPORT INFORMATION
  Report Type: Spontaneous
  Country: US (occurrence: US)
  Receive Date: 20130617
  Receipt Date: 20131009
  Transmission Date: 20140711
  Serious: Yes (Other)
  Sender: FDA-Public Use
  Company Number: US-PFIZER INC-2013176629

PATIENT
  Age: 57 Year
  Sex: Female

DRUGS (2)
  1. XALKORI [Suspect]
     Indication: LUNG NEOPLASM MALIGNANT
     Dosage: 250 MG, 2X/DAY
     Route: 048
     Dates: start: 20130417
  2. XALKORI [Suspect]
     Dosage: 250 MG, 1X/DAY
     Route: 048

REACTIONS (4)
  - Liver injury [Unknown]
  - Oedema peripheral [Unknown]
  - Diplopia [Unknown]
  - Fatigue [Unknown]
